FAERS Safety Report 7238231-8 (Version None)
Quarter: 2011Q1

REPORT INFORMATION
  Report Type: 
  Country: None (occurrence: None)
  Receive Date: 20110121
  Receipt Date: 20110114
  Transmission Date: 20110831
  Serious: No
  Sender: FDA-Public Use
  Company Number: US-PFIZER INC-2011010181

PATIENT
  Sex: Female

DRUGS (2)
  1. PRISTIQ [Suspect]
     Indication: MAJOR DEPRESSION
     Dosage: 100 MG, DAILY
     Route: 048
     Dates: start: 20100101
  2. CYMBALTA [Concomitant]
     Dosage: UNK
     Route: 048

REACTIONS (3)
  - PARAESTHESIA [None]
  - HYPERHIDROSIS [None]
  - WITHDRAWAL SYNDROME [None]
